FAERS Safety Report 7810384-X (Version None)
Quarter: 2011Q4

REPORT INFORMATION
  Report Type: 
  Country: None (occurrence: None)
  Receive Date: 20111012
  Receipt Date: 20111004
  Transmission Date: 20120403
  Serious: Yes (Other)
  Sender: FDA-Public Use
  Company Number: CA-ASTRAZENECA-2011SE59572

PATIENT

DRUGS (1)
  1. CRESTOR [Suspect]
     Route: 048
     Dates: start: 20110301

REACTIONS (1)
  - PANCYTOPENIA [None]
